FAERS Safety Report 26166621 (Version 1)
Quarter: 2025Q4

REPORT INFORMATION
  Report Type: Spontaneous
  Country: BR (occurrence: BR)
  Receive Date: 20251217
  Receipt Date: 20251217
  Transmission Date: 20260118
  Serious: No
  Sender: JOHNSON AND JOHNSON
  Company Number: BR-JNJFOC-20251208552

PATIENT
  Age: 47 Year
  Sex: Female
  Weight: 93 kg

DRUGS (1)
  1. GUSELKUMAB [Suspect]
     Active Substance: GUSELKUMAB
     Indication: Psoriasis
     Dates: start: 20251204, end: 20251204

REACTIONS (2)
  - Product dose omission issue [Unknown]
  - Device deployment issue [Unknown]

NARRATIVE: CASE EVENT DATE: 20251204
